FAERS Safety Report 24090347 (Version 1)
Quarter: 2024Q3

REPORT INFORMATION
  Report Type: Spontaneous
  Country: HU (occurrence: None)
  Receive Date: 20240715
  Receipt Date: 20240715
  Transmission Date: 20241017
  Serious: Yes (Death, Life-Threatening, Other)
  Sender: ADIENNE PHARMA & BIOTECH
  Company Number: HU-ADIENNEP-2024AD000583

PATIENT
  Sex: Female

DRUGS (7)
  1. THIOTEPA [Suspect]
     Active Substance: THIOTEPA
     Indication: Allogenic stem cell transplantation
     Dosage: ()
     Dates: start: 202205, end: 202205
  2. FLUDARABINE [Suspect]
     Active Substance: FLUDARABINE PHOSPHATE
     Indication: Allogenic stem cell transplantation
     Dosage: ()
     Dates: start: 202205, end: 202205
  3. MELPHALAN [Suspect]
     Active Substance: MELPHALAN
     Indication: Allogenic stem cell transplantation
     Dosage: ()
     Dates: start: 202205, end: 202205
  4. ANTI-THYMOCYTE GLOBULIN (RABBIT) NOS [Suspect]
     Active Substance: LAPINE T-LYMPHOCYTE IMMUNE GLOBULIN
     Indication: Prophylaxis against graft versus host disease
  5. CYCLOPHOSPHAMIDE [Suspect]
     Active Substance: CYCLOPHOSPHAMIDE
     Indication: Prophylaxis against graft versus host disease
  6. MYCOPHENOLATE MOFETIL [Suspect]
     Active Substance: MYCOPHENOLATE MOFETIL
     Indication: Prophylaxis against graft versus host disease
  7. TACROLIMUS [Suspect]
     Active Substance: TACROLIMUS
     Indication: Prophylaxis against graft versus host disease

REACTIONS (11)
  - Cardiac failure [Fatal]
  - Mucosal inflammation [Unknown]
  - BK virus infection [Not Recovered/Not Resolved]
  - Viral haemorrhagic cystitis [Not Recovered/Not Resolved]
  - Bacteraemia [Unknown]
  - Fungal infection [Unknown]
  - Parainfluenzae virus infection [Not Recovered/Not Resolved]
  - Human herpesvirus 6 infection reactivation [Not Recovered/Not Resolved]
  - Cytomegalovirus infection reactivation [Not Recovered/Not Resolved]
  - Infection reactivation [Not Recovered/Not Resolved]
  - Respiratory failure [Fatal]
